FAERS Safety Report 8271367 (Version 3)
Quarter: 2014Q3

REPORT INFORMATION
  Report Type: Spontaneous
  Country: US (occurrence: US)
  Receive Date: 20111201
  Receipt Date: 20140723
  Transmission Date: 20150326
  Serious: Yes (Other)
  Sender: FDA-Public Use
  Company Number: US-ASTRAZENECA-2011SE71216

PATIENT
  Age: 66 Year
  Sex: Female
  Weight: 72.6 kg

DRUGS (8)
  1. NEXIUM [Suspect]
     Active Substance: ESOMEPRAZOLE MAGNESIUM
     Indication: HIATUS HERNIA
     Route: 048
  2. CRESTOR [Suspect]
     Active Substance: ROSUVASTATIN CALCIUM
     Route: 048
  3. STEROID DROPS [Concomitant]
  4. STEROID DROPS [Concomitant]
     Route: 048
  5. NEXIUM [Suspect]
     Active Substance: ESOMEPRAZOLE MAGNESIUM
     Indication: GASTROOESOPHAGEAL REFLUX DISEASE
     Route: 048
  6. NEXIUM [Suspect]
     Active Substance: ESOMEPRAZOLE MAGNESIUM
     Indication: HIATUS HERNIA
     Route: 048
     Dates: start: 2010
  7. NEXIUM [Suspect]
     Active Substance: ESOMEPRAZOLE MAGNESIUM
     Indication: GASTROOESOPHAGEAL REFLUX DISEASE
     Route: 048
     Dates: start: 2010
  8. SINGULAIR [Concomitant]
     Active Substance: MONTELUKAST SODIUM

REACTIONS (11)
  - Polydipsia [Unknown]
  - Vertigo [Unknown]
  - Neck injury [Unknown]
  - Road traffic accident [Unknown]
  - Blindness unilateral [Unknown]
  - Inner ear disorder [Unknown]
  - Off label use [Unknown]
  - Vitreous floaters [Unknown]
  - Dry mouth [Unknown]
  - Cataract [Unknown]
  - Drug dose omission [Unknown]

NARRATIVE: CASE EVENT DATE: 2010
